FAERS Safety Report 8381295-9 (Version None)
Quarter: 2012Q2

REPORT INFORMATION
  Report Type: 
  Country: None (occurrence: None)
  Receive Date: 20120523
  Receipt Date: 20120521
  Transmission Date: 20120825
  Serious: Yes (Death, Hospitalization, Other)
  Sender: FDA-Public Use
  Company Number: US-ABBOTT-12P-163-0910117-00

PATIENT
  Sex: Female

DRUGS (8)
  1. HUMIRA [Suspect]
     Dates: start: 20111101
  2. UNNAMED MEDICATION [Concomitant]
     Indication: BLOOD CHOLESTEROL INCREASED
  3. SYNTHROID [Concomitant]
     Indication: HYPOTHYROIDISM
  4. HUMIRA [Suspect]
     Indication: PSORIASIS
     Dates: start: 20081201, end: 20111001
  5. METFORMIN HCL [Concomitant]
     Indication: DIABETES MELLITUS
     Dates: start: 20120116
  6. GLUCOPHAGE [Concomitant]
     Indication: DIABETES MELLITUS
  7. TACLONEX [Concomitant]
     Indication: PSORIASIS
     Dosage: DAILY
     Route: 061
     Dates: start: 20110214
  8. DOVENEX [Concomitant]
     Indication: PSORIASIS
     Route: 061
     Dates: start: 20120116

REACTIONS (6)
  - PNEUMONIA [None]
  - MUCOSAL DRYNESS [None]
  - TACHYCARDIA [None]
  - HEPATITIS C ANTIBODY POSITIVE [None]
  - PAIN [None]
  - ACUTE RESPIRATORY DISTRESS SYNDROME [None]
